FAERS Safety Report 4866644-8 (Version None)
Quarter: 2005Q4

REPORT INFORMATION
  Report Type: 
  Country: None (occurrence: None)
  Receive Date: 20051227
  Receipt Date: 20051216
  Transmission Date: 20060501
  Serious: Yes (Hospitalization)
  Sender: FDA-Public Use
  Company Number: US-JNJFOC-20051204617

PATIENT
  Age: 61 Year
  Sex: Male
  Weight: 90.72 kg

DRUGS (5)
  1. ULTRAM [Suspect]
     Indication: SHOULDER PAIN
  2. ULTRAM [Suspect]
     Indication: NECK PAIN
     Dosage: TWO 50 MG TABLETS EVERY FOUR HOURS.
  3. PROZAC [Concomitant]
     Indication: STRESS
  4. NEURONTIN [Concomitant]
     Indication: PAIN
  5. HYDROCODONE [Concomitant]
     Indication: PAIN
     Dosage: TWO 10/500 TABLETS EVERY EIGHT HOURS.

REACTIONS (3)
  - HOMICIDAL IDEATION [None]
  - NIGHTMARE [None]
  - SUICIDAL IDEATION [None]
